FAERS Safety Report 10996928 (Version 1)
Quarter: 2015Q1

REPORT INFORMATION
  Report Type: Spontaneous
  Country: US (occurrence: None)
  Receive Date: 20150330
  Receipt Date: 20150330
  Transmission Date: 20150721
  Serious: Yes (Other)
  Sender: FDA-Public Use
  Company Number: 2014TUS010706

PATIENT
  Sex: Female

DRUGS (7)
  1. ISOSORBIDE DINITRATE (ISOSORBIDE DINITRATE) (ISOSORBIDE DINITRATE) [Suspect]
     Active Substance: ISOSORBIDE DINITRATE
     Indication: HEART VALVE INCOMPETENCE
  2. METOPROLOL /00376902/ [Suspect]
     Active Substance: METOPROLOL
     Indication: HEART VALVE INCOMPETENCE
  3. PERCOCET [Suspect]
     Active Substance: ACETAMINOPHEN\OXYCODONE HYDROCHLORIDE
     Indication: ARTHRITIS
  4. NEXIUM [Suspect]
     Active Substance: ESOMEPRAZOLE MAGNESIUM
     Indication: GASTROOESOPHAGEAL REFLUX DISEASE
  5. DEXILANT [Suspect]
     Active Substance: DEXLANSOPRAZOLE
     Indication: GASTROOESOPHAGEAL REFLUX DISEASE
     Dates: start: 20140811
  6. VOLTAREN [Suspect]
     Active Substance: DICLOFENAC SODIUM
     Indication: ARTHRITIS
     Route: 061
     Dates: start: 20140917
  7. PLAVIX (CLOPIDOGREL, BISULFATE) [Concomitant]

REACTIONS (8)
  - Pain [None]
  - Cervical vertebral fracture [None]
  - Weight decreased [None]
  - Spinal disorder [None]
  - Gastrooesophageal reflux disease [None]
  - Diarrhoea [None]
  - Condition aggravated [None]
  - Back pain [None]

NARRATIVE: CASE EVENT DATE: 20140917
